FAERS Safety Report 8220270-1 (Version None)
Quarter: 2012Q1

REPORT INFORMATION
  Report Type: 
  Country: None (occurrence: None)
  Receive Date: 20120320
  Receipt Date: 20120316
  Transmission Date: 20120608
  Serious: No
  Sender: FDA-Public Use
  Company Number: US-PFIZER INC-2012070058

PATIENT
  Sex: Female

DRUGS (8)
  1. PROTONIX [Suspect]
     Indication: GASTROOESOPHAGEAL REFLUX DISEASE
  2. MICARDIS [Concomitant]
     Indication: HYPERTENSION
     Dosage: UNK
  3. PROTONIX [Suspect]
     Indication: ABDOMINAL DISCOMFORT
  4. LIPITOR [Concomitant]
     Dosage: UNK
  5. PREVACID [Concomitant]
     Dosage: UNK, AS NEEDED
  6. PROTONIX [Suspect]
     Indication: HYPERCHLORHYDRIA
     Dosage: 40 MG, 1X/DAY
     Route: 048
     Dates: start: 20120308
  7. PROTONIX [Suspect]
     Indication: ABDOMINAL PAIN UPPER
  8. ARTHROTEC [Concomitant]
     Dosage: UNK

REACTIONS (2)
  - MALAISE [None]
  - HEADACHE [None]
